FAERS Safety Report 6160491-5 (Version None)
Quarter: 2009Q2

REPORT INFORMATION
  Report Type: 
  Country: None (occurrence: None)
  Receive Date: 20090416
  Receipt Date: 20090406
  Transmission Date: 20091009
  Serious: Yes (Hospitalization)
  Sender: FDA-Public Use
  Company Number: 2009SP007617

PATIENT
  Age: 49 Year
  Sex: Male
  Weight: 86 kg

DRUGS (8)
  1. BOCEPREVIR (SCH 503034) [Suspect]
     Indication: HEPATITIS C
     Dosage: 800 MG TID; PO
     Route: 048
     Dates: start: 20081229
  2. PEG-INTRON [Suspect]
     Indication: HEPATITIS C
     Dosage: 150 MCG; QW; SC
     Route: 058
     Dates: start: 20081203
  3. REBETOL [Suspect]
     Indication: HEPATITIS C
     Dosage: 1200 MG, QD; PO
     Route: 048
     Dates: start: 20081203
  4. TERCIAN [Concomitant]
  5. ATHYMIL [Concomitant]
  6. INIPOMP [Concomitant]
  7. XANAX [Concomitant]
  8. EPREX [Concomitant]

REACTIONS (1)
  - PULMONARY EMBOLISM [None]
